FAERS Safety Report 10904151 (Version 1)
Quarter: 2015Q1

REPORT INFORMATION
  Report Type: Spontaneous
  Country: US (occurrence: None)
  Receive Date: 20150107
  Receipt Date: 20150107
  Transmission Date: 20150721
  Serious: No
  Sender: FDA-Public Use
  Company Number: 2014TUS011451

PATIENT
  Age: 43 Year
  Sex: Female
  Weight: 96.1 kg

DRUGS (1)
  1. CONTRAVE [Suspect]
     Active Substance: BUPROPION HYDROCHLORIDE\NALTREXONE HYDROCHLORIDE
     Indication: WEIGHT INCREASED
     Route: 048
     Dates: start: 201410

REACTIONS (3)
  - Drug ineffective [None]
  - Incorrect dose administered [None]
  - Seasonal allergy [None]

NARRATIVE: CASE EVENT DATE: 201410
